FAERS Safety Report 20365845 (Version 1)
Quarter: 2022Q1

REPORT INFORMATION
  Report Type: Spontaneous
  Country: JP (occurrence: JP)
  Receive Date: 20220123
  Receipt Date: 20220123
  Transmission Date: 20220423
  Serious: Yes (Death)
  Sender: FDA-Public Use
  Company Number: JP-TEVA-2022-JP-2000164

PATIENT
  Age: 48 Year
  Sex: Female

DRUGS (4)
  1. CARBOPLATIN [Suspect]
     Active Substance: CARBOPLATIN
     Indication: Squamous cell carcinoma
     Dosage: AREA UNDER THE CURVE (AUC) = 6
     Route: 065
  2. CARBOPLATIN [Suspect]
     Active Substance: CARBOPLATIN
     Indication: Squamous cell carcinoma
     Dosage: THREE TIMES A WEEK; AREA UNDER THE CURVE (AUC) = 5
     Route: 065
  3. GEMCITABINE HYDROCHLORIDE [Suspect]
     Active Substance: GEMCITABINE HYDROCHLORIDE
     Indication: Squamous cell carcinoma
     Dosage: THREE TIMES A WEEK
     Route: 065
  4. PACLITAXEL [Suspect]
     Active Substance: PACLITAXEL
     Indication: Squamous cell carcinoma
     Route: 065

REACTIONS (1)
  - Drug ineffective [Fatal]
